FAERS Safety Report 21448220 (Version 1)
Quarter: 2022Q4

REPORT INFORMATION
  Report Type: Spontaneous
  Country: US (occurrence: None)
  Receive Date: 20221011
  Receipt Date: 20221011
  Transmission Date: 20230112
  Serious: Yes (Hospitalization)
  Sender: FDA-Public Use
  Company Number: None

PATIENT
  Sex: Female

DRUGS (7)
  1. PULMOZYME [Suspect]
     Active Substance: DORNASE ALFA
     Indication: Cystic fibrosis
     Dosage: 2.5 MG/2.5ML INHALATION?INHALE 2.5 MG BY NEBULIZATION ONCE DAILY.?
     Route: 055
     Dates: start: 20150424
  2. ALBUTEROL [Concomitant]
     Active Substance: ALBUTEROL
  3. CAYSTON [Concomitant]
     Active Substance: AZTREONAM
  4. SODIUM CHLORIDE [Concomitant]
     Active Substance: SODIUM CHLORIDE
  5. TOBRAMYCIN [Concomitant]
     Active Substance: TOBRAMYCIN
  6. TOBI [Concomitant]
     Active Substance: TOBRAMYCIN
  7. VENTOLIN [Concomitant]

REACTIONS (1)
  - Lung disorder [None]
